FAERS Safety Report 8362100-3 (Version None)
Quarter: 2012Q2

REPORT INFORMATION
  Report Type: 
  Country: None (occurrence: None)
  Receive Date: 20120515
  Receipt Date: 20120430
  Transmission Date: 20120825
  Serious: Yes (Hospitalization)
  Sender: FDA-Public Use
  Company Number: HR-TEVA-336567ISR

PATIENT
  Age: 42 Year
  Sex: Female
  Weight: 87 kg

DRUGS (3)
  1. ETOPOSIDE [Suspect]
     Indication: TESTIS CANCER
     Dosage: 210 MILLIGRAM;
     Route: 042
     Dates: start: 20120114, end: 20120118
  2. BLEOMICIN [Suspect]
     Indication: TESTIS CANCER
     Dosage: 30 MILLIGRAM;
     Route: 042
     Dates: start: 20120114, end: 20120118
  3. CISPLATIN [Suspect]
     Indication: TESTIS CANCER
     Dosage: 42 MILLIGRAM;
     Route: 042
     Dates: start: 20120114, end: 20120118

REACTIONS (3)
  - THROMBOCYTOPENIA [None]
  - THROAT IRRITATION [None]
  - LEUKOPENIA [None]
